FAERS Safety Report 8520183-1 (Version None)
Quarter: 2012Q3

REPORT INFORMATION
  Report Type: 
  Country: None (occurrence: None)
  Receive Date: 20120705
  Receipt Date: 20120622
  Transmission Date: 20120928
  Serious: Yes (Hospitalization, Other)
  Sender: FDA-Public Use
  Company Number: 2012SP035321

PATIENT
  Age: 49 Year
  Sex: Female
  Weight: 59.4 kg

DRUGS (15)
  1. DROSPIRENONE AND ETHINYL ESTRADIOL [Concomitant]
  2. DEXERYL [Concomitant]
  3. VICTRELIS [Suspect]
     Indication: HEPATITIS C
     Dosage: 800 MG;TID
     Dates: start: 20120413, end: 20120622
  4. VIRAFERONPEG [Suspect]
     Indication: HEPATITIS C
     Dosage: 80 MCG; QW;
     Dates: start: 20120316, end: 20120622
  5. ISENTRESS [Concomitant]
  6. FORTIMEL [Concomitant]
  7. CELLUVISC [Concomitant]
  8. NEORECORMON (EPOETIN BETA) [Suspect]
     Dosage: 30000 IU; BIW
     Dates: start: 20120426
  9. REBETOL [Suspect]
     Indication: HEPATITIS C
     Dosage: 800 MG;QD; 600 MG; QD; 400 MG; QD
     Dates: start: 20120620
  10. REBETOL [Suspect]
     Indication: HEPATITIS C
     Dosage: 800 MG;QD; 600 MG; QD; 400 MG; QD
     Dates: start: 20120316
  11. REBETOL [Suspect]
     Indication: HEPATITIS C
     Dosage: 800 MG;QD; 600 MG; QD; 400 MG; QD
     Dates: start: 20120607
  12. MYCOSTER [Concomitant]
  13. VIREAD [Concomitant]
  14. EMTRIVA [Concomitant]
  15. ACETAMINOPHEN [Concomitant]

REACTIONS (9)
  - NAUSEA [None]
  - FOOD INTOLERANCE [None]
  - LUNG DISORDER [None]
  - VOMITING [None]
  - HYPERTHERMIA [None]
  - GASTROINTESTINAL DISORDER [None]
  - ANAEMIA [None]
  - PYREXIA [None]
  - PRODUCTIVE COUGH [None]
